FAERS Safety Report 20485366 (Version 1)
Quarter: 2022Q1

REPORT INFORMATION
  Report Type: Spontaneous
  Country: US (occurrence: None)
  Receive Date: 20220217
  Receipt Date: 20220217
  Transmission Date: 20220424
  Serious: Yes (Other)
  Sender: FDA-Public Use
  Company Number: None

PATIENT
  Age: 80 Year
  Sex: Female
  Weight: 75.15 kg

DRUGS (8)
  1. MOLNUPIRAVIR [Suspect]
     Active Substance: MOLNUPIRAVIR
     Indication: COVID-19
     Dosage: FREQUENCY : TWICE A DAY;?
     Route: 048
     Dates: start: 20220215, end: 20220216
  2. AMLODIPINE [Concomitant]
     Active Substance: AMLODIPINE BESYLATE
  3. ESOMEPRAZOLE [Concomitant]
     Active Substance: ESOMEPRAZOLE
  4. PREDNISONE [Concomitant]
     Active Substance: PREDNISONE
  5. SIMVASTATIN [Concomitant]
     Active Substance: SIMVASTATIN
  6. Sucralafate [Concomitant]
  7. ZOFRAN [Concomitant]
     Active Substance: ONDANSETRON HYDROCHLORIDE
  8. MECLIZINE [Concomitant]
     Active Substance: MECLIZINE HYDROCHLORIDE

REACTIONS (4)
  - Dysphagia [None]
  - Dyspnoea [None]
  - Anxiety [None]
  - Panic attack [None]

NARRATIVE: CASE EVENT DATE: 20220217
